FAERS Safety Report 7983645-1 (Version None)
Quarter: 2011Q4

REPORT INFORMATION
  Report Type: 
  Country: None (occurrence: None)
  Receive Date: 20111215
  Receipt Date: 20111208
  Transmission Date: 20120403
  Serious: Yes (Other)
  Sender: FDA-Public Use
  Company Number: US-ASTRAZENECA-2011SE74491

PATIENT
  Age: 69 Year
  Sex: Female
  Weight: 49.9 kg

DRUGS (3)
  1. SEROQUEL XR [Suspect]
     Route: 048
  2. LORAZEPAM [Concomitant]
     Indication: ANXIOLYTIC THERAPY
     Dosage: PRN
  3. SEROQUEL XR [Suspect]
     Indication: DEPRESSION
     Route: 048

REACTIONS (5)
  - SUICIDAL IDEATION [None]
  - DRUG INEFFECTIVE [None]
  - ANXIETY [None]
  - DEPRESSION [None]
  - WEIGHT DECREASED [None]
